FAERS Safety Report 10164302 (Version 2)
Quarter: 2014Q4

REPORT INFORMATION
  Report Type: Spontaneous
  Country: US (occurrence: US)
  Receive Date: 20140510
  Receipt Date: 20141205
  Transmission Date: 20150528
  Serious: Yes (Hospitalization, Other)
  Sender: FDA-Public Use
  Company Number: US-BRISTOL-MYERS SQUIBB COMPANY-20030847

PATIENT
  Age: 62 Year
  Sex: Female
  Weight: 113.38 kg

DRUGS (16)
  1. NEURONTIN [Concomitant]
     Active Substance: GABAPENTIN
     Dosage: 300MG ORAL CAP TAKE 600MG THREE TIMES DAILY
     Route: 048
  2. BYDUREON [Suspect]
     Active Substance: EXENATIDE
     Indication: TYPE 2 DIABETES MELLITUS
     Route: 058
     Dates: start: 20130731, end: 20131023
  3. NEXIUM [Concomitant]
     Active Substance: ESOMEPRAZOLE MAGNESIUM
  4. CRESTOR [Concomitant]
     Active Substance: ROSUVASTATIN CALCIUM
     Route: 048
  5. FISH OIL [Concomitant]
     Active Substance: FISH OIL
  6. LACTULOSE. [Concomitant]
     Active Substance: LACTULOSE
  7. ASA [Concomitant]
     Active Substance: ASPIRIN
  8. VITAMIN D [Concomitant]
     Active Substance: CHOLECALCIFEROL
     Dosage: 2000 UNIT ONCE DAILY
  9. CALCIUM [Concomitant]
     Active Substance: CALCIUM
  10. HUMALOG [Concomitant]
     Active Substance: INSULIN LISPRO
     Dosage: QUICK PEN 100UNT SQ 52 UNITS EACH MEAL?55 UNITS EACH MEAL 2-3 PER DAY
     Route: 058
  11. LISINOPRIL. [Concomitant]
     Active Substance: LISINOPRIL
  12. LEVSIN [Concomitant]
     Active Substance: HYOSCYAMINE SULFATE
  13. FLEXERIL [Concomitant]
     Active Substance: CYCLOBENZAPRINE HYDROCHLORIDE
  14. SPIRIVA [Concomitant]
     Active Substance: TIOTROPIUM BROMIDE MONOHYDRATE
  15. LANTUS [Concomitant]
     Active Substance: INSULIN GLARGINE
     Dosage: 100U ML SQ 110 UNITS BEDTIME?80 UNITS AT BEDTIME
     Route: 058
  16. NITROGLYCERIN. [Concomitant]
     Active Substance: NITROGLYCERIN
     Route: 058

REACTIONS (7)
  - Pancreatitis [Recovering/Resolving]
  - Pruritus [Unknown]
  - Blood glucose increased [Unknown]
  - Weight decreased [Unknown]
  - Fatigue [Unknown]
  - Polydipsia [Unknown]
  - Polyuria [Unknown]

NARRATIVE: CASE EVENT DATE: 20131023
